FAERS Safety Report 20033549 (Version 2)
Quarter: 2021Q4

REPORT INFORMATION
  Report Type: Spontaneous
  Country: JP (occurrence: JP)
  Receive Date: 20211104
  Receipt Date: 20211220
  Transmission Date: 20220303
  Serious: Yes (Death, Other)
  Sender: FDA-Public Use
  Company Number: JP-SYMBIO-202100396

PATIENT
  Age: 70 Year
  Sex: Female

DRUGS (3)
  1. BENDAMUSTINE HYDROCHLORIDE [Suspect]
     Active Substance: BENDAMUSTINE HYDROCHLORIDE
     Indication: Diffuse large B-cell lymphoma
     Route: 041
  2. RITUXAN [Suspect]
     Active Substance: RITUXIMAB
     Indication: Diffuse large B-cell lymphoma
     Route: 041
  3. POLATUZUMAB VEDOTIN [Suspect]
     Active Substance: POLATUZUMAB VEDOTIN
     Indication: Diffuse large B-cell lymphoma
     Route: 041

REACTIONS (13)
  - Cardio-respiratory arrest [Fatal]
  - Ventricular tachycardia [Fatal]
  - Disease progression [Fatal]
  - Hypogammaglobulinaemia [Unknown]
  - Malignant neoplasm progression [Unknown]
  - Diffuse large B-cell lymphoma recurrent [Unknown]
  - Pyrexia [Unknown]
  - Pain in extremity [Unknown]
  - Somnolence [Recovering/Resolving]
  - Aphthous ulcer [Unknown]
  - Disease recurrence [Unknown]
  - Off label use [Unknown]
  - Product use in unapproved indication [Unknown]
